FAERS Safety Report 8838065 (Version 1)
Quarter: 2012Q4

REPORT INFORMATION
  Report Type: Report from Study
  Country: US (occurrence: US)
  Receive Date: 20121012
  Receipt Date: 20121012
  Transmission Date: 20130627
  Serious: Yes (Hospitalization, Other)
  Sender: FDA-Public Use
  Company Number: US-ABBOTT-12P-163-0990738-00

PATIENT
  Age: 61 Year
  Sex: Male

DRUGS (8)
  1. HUMIRA [Suspect]
     Indication: CROHN^S DISEASE
  2. NEXIUM [Concomitant]
     Indication: GASTROOESOPHAGEAL REFLUX DISEASE
  3. AZOR [Concomitant]
     Indication: HYPERTENSION
     Dosage: 5/40MG
  4. FOLIC ACID [Concomitant]
     Indication: PRODUCT USED FOR UNKNOWN INDICATION
  5. ALLEGRA [Concomitant]
     Indication: HYPERSENSITIVITY
  6. LEVBID [Concomitant]
     Indication: PRODUCT USED FOR UNKNOWN INDICATION
  7. CIPROFLOXACIN [Concomitant]
     Indication: CROHN^S DISEASE
  8. METRONIDAZOLE [Concomitant]
     Indication: CROHN^S DISEASE

REACTIONS (9)
  - Knee arthroplasty [Not Recovered/Not Resolved]
  - Accident at work [Unknown]
  - Herpes zoster [Unknown]
  - Enteritis infectious [Unknown]
  - Crohn^s disease [Unknown]
  - Crohn^s disease [Unknown]
  - Diarrhoea [Unknown]
  - Incorrect dose administered [Unknown]
  - Device malfunction [Unknown]
